FAERS Safety Report 4274104-0 (Version None)
Quarter: 2004Q1

REPORT INFORMATION
  Report Type: 
  Country: None (occurrence: None)
  Receive Date: 20040120
  Receipt Date: 20040106
  Transmission Date: 20041129
  Serious: Yes (Hospitalization)
  Sender: FDA-Public Use
  Company Number: GB-GLAXOSMITHKLINE-B0319137A

PATIENT
  Age: 37 Year
  Sex: Male

DRUGS (1)
  1. ZYBAN [Suspect]
     Route: 048
     Dates: end: 20031015

REACTIONS (3)
  - CONDITION AGGRAVATED [None]
  - OVERDOSE [None]
  - SUICIDAL IDEATION [None]
